FAERS Safety Report 8143723-3 (Version None)
Quarter: 2012Q1

REPORT INFORMATION
  Report Type: 
  Country: None (occurrence: None)
  Receive Date: 20120217
  Receipt Date: 20120213
  Transmission Date: 20120608
  Serious: Yes (Other)
  Sender: FDA-Public Use
  Company Number: BE-ASTELLAS-2012EU001118

PATIENT
  Sex: Male
  Weight: 10.3 kg

DRUGS (10)
  1. URSODIOL [Concomitant]
     Dosage: UNK
     Route: 048
     Dates: start: 20110101, end: 20120111
  2. NEXIUM [Concomitant]
     Indication: VARICES OESOPHAGEAL
     Dosage: UNK
     Route: 042
     Dates: start: 20110101, end: 20120108
  3. TRANEXAMIC ACID [Concomitant]
     Indication: PROPHYLAXIS
     Dosage: UNK
     Route: 048
     Dates: start: 20110101, end: 20120111
  4. GANCICLOVIR [Concomitant]
     Indication: CYTOMEGALOVIRUS INFECTION
     Dosage: UNK
     Route: 042
     Dates: start: 20120110
  5. TEMOCILLIN [Concomitant]
     Indication: PROPHYLAXIS
     Dosage: UNK
     Route: 042
     Dates: start: 20120107
  6. RANITIDINE [Concomitant]
     Indication: PROPHYLAXIS
     Dosage: UNK
     Route: 042
     Dates: start: 20120109
  7. ALIZAPRIDE [Concomitant]
     Indication: PROPHYLAXIS
     Dosage: UNK
     Route: 042
     Dates: start: 20120112
  8. TACROLIMUS [Suspect]
     Indication: TRANSPLANT REJECTION
     Dosage: 1.6 MG, BID
     Route: 048
     Dates: start: 20120112
  9. SANDOSTATIN [Concomitant]
     Indication: VARICES OESOPHAGEAL
     Dosage: UNK
     Route: 042
     Dates: start: 20110101, end: 20120111
  10. AMOXICILLIN [Concomitant]
     Indication: PROPHYLAXIS
     Dosage: UNK
     Route: 042
     Dates: start: 20120107

REACTIONS (1)
  - TOXICITY TO VARIOUS AGENTS [None]
